FAERS Safety Report 6674296-X (Version None)
Quarter: 2010Q2

REPORT INFORMATION
  Report Type: 
  Country: None (occurrence: None)
  Receive Date: 20100409
  Receipt Date: 20100401
  Transmission Date: 20101027
  Serious: Yes (Other)
  Sender: FDA-Public Use
  Company Number: FI-PFIZER INC-2010041582

PATIENT
  Age: 63 Year
  Sex: Female

DRUGS (6)
  1. PROVERA [Suspect]
     Indication: AMENORRHOEA
     Dosage: 5 MG
     Dates: start: 20080101
  2. PROVERA [Suspect]
     Dosage: 10 MG
     Dates: start: 20100101
  3. ESTROGEL [Concomitant]
     Indication: HORMONE REPLACEMENT THERAPY
  4. SERETIDE DISKUS [Concomitant]
  5. THYROXIN [Concomitant]
  6. SIMVASTATIN [Concomitant]
     Dosage: 10 MG, UNK

REACTIONS (3)
  - DRUG INEFFECTIVE [None]
  - ENDOMETRIAL HYPERTROPHY [None]
  - POLYP [None]
